FAERS Safety Report 24174946 (Version 2)
Quarter: 2024Q3

REPORT INFORMATION
  Report Type: Spontaneous
  Country: BR (occurrence: BR)
  Receive Date: 20240805
  Receipt Date: 20240823
  Transmission Date: 20241017
  Serious: Yes (Death)
  Sender: BEIGENE
  Company Number: BR-BEIGENE-BGN-2024-012147

PATIENT

DRUGS (1)
  1. BRUKINSA [Suspect]
     Active Substance: ZANUBRUTINIB
     Indication: Mantle cell lymphoma
     Dosage: 160 MILLIGRAM, BID
     Route: 048
     Dates: start: 202212

REACTIONS (8)
  - Acute myocardial infarction [Fatal]
  - Ventricular fibrillation [Fatal]
  - Back pain [Unknown]
  - Blood creatinine increased [Unknown]
  - Chest pain [Unknown]
  - Blood lactate dehydrogenase increased [Unknown]
  - Intervertebral disc protrusion [Unknown]
  - Nausea [Unknown]

NARRATIVE: CASE EVENT DATE: 20240701
